FAERS Safety Report 10467578 (Version 3)
Quarter: 2015Q2

REPORT INFORMATION
  Report Type: Spontaneous
  Country: US (occurrence: US)
  Receive Date: 20140922
  Receipt Date: 20150506
  Transmission Date: 20150821
  Serious: Yes (Hospitalization, Other)
  Sender: FDA-Public Use
  Company Number: US-BAYER-2014-140769

PATIENT
  Age: 33 Year
  Sex: Female
  Weight: 65.76 kg

DRUGS (3)
  1. ALBUTEROL. [Concomitant]
     Active Substance: ALBUTEROL
     Dosage: UNK
     Dates: start: 20120327
  2. MIRENA [Suspect]
     Active Substance: LEVONORGESTREL
     Indication: CONTRACEPTION
     Dosage: 20 MCG/24HR, CONT
     Route: 015
     Dates: start: 20080905, end: 20120412
  3. ZYRTEC [Concomitant]
     Active Substance: CETIRIZINE HYDROCHLORIDE
     Dosage: UNK
     Dates: start: 20120327

REACTIONS (19)
  - Pelvic pain [None]
  - Pelvic congestion [None]
  - General physical health deterioration [None]
  - Abdominal pain lower [None]
  - Fear [None]
  - Device dislocation [None]
  - Genital haemorrhage [Not Recovered/Not Resolved]
  - Pregnancy with contraceptive device [None]
  - Injury [None]
  - Medical device discomfort [None]
  - Depression [None]
  - Uterine perforation [None]
  - Abdominal pain [None]
  - Anxiety [None]
  - Device issue [None]
  - Emotional distress [None]
  - Depressed mood [None]
  - Internal injury [None]
  - Drug ineffective [None]

NARRATIVE: CASE EVENT DATE: 201005
